FAERS Safety Report 5176351-2 (Version None)
Quarter: 2006Q4

REPORT INFORMATION
  Report Type: 
  Country: None (occurrence: None)
  Receive Date: 20061207
  Receipt Date: 20061127
  Transmission Date: 20070319
  Serious: Yes (Hospitalization)
  Sender: FDA-Public Use
  Company Number: SEWYE680529NOV06

PATIENT
  Age: 35 Year
  Sex: Female

DRUGS (2)
  1. EFFEXOR [Suspect]
     Indication: DEPRESSION
     Dosage: 300 MG PER DAY, ORAL
     Route: 048
  2. ATENOLOL [Concomitant]

REACTIONS (4)
  - CEREBRAL INFARCTION [None]
  - MALAISE [None]
  - PLASMINOGEN ACTIVATOR INHIBITOR INCREASED [None]
  - SENSORY DISTURBANCE [None]
